FAERS Safety Report 17789968 (Version 2)
Quarter: 2020Q2

REPORT INFORMATION
  Report Type: Spontaneous
  Country: NP (occurrence: NP)
  Receive Date: 20200515
  Receipt Date: 20200526
  Transmission Date: 20200714
  Serious: Yes (Hospitalization, Other)
  Sender: FDA-Public Use
  Company Number: NP-CIPLA LTD.-2020NP03309

PATIENT

DRUGS (2)
  1. ALCOHOL. [Suspect]
     Active Substance: ALCOHOL
     Dosage: UNK, INGESTED UNDER THE INFLUENCE OF ALCOHOL
     Route: 048
  2. AMLODIPINE [Suspect]
     Active Substance: AMLODIPINE BESYLATE
     Dosage: 175 MILLIGRAM, (70 TABLETS OF 2.5 MG, 28 TABLETS INITIALLY FOLLOWED BY OTHERS), IN TOTAL
     Route: 048

REACTIONS (6)
  - Intentional overdose [Recovered/Resolved]
  - Ocular hyperaemia [Recovered/Resolved]
  - Anxiety [Recovering/Resolving]
  - Suicide attempt [Unknown]
  - Abdominal discomfort [Recovered/Resolved]
  - Somnolence [Recovered/Resolved]
